FAERS Safety Report 7823013-6 (Version None)
Quarter: 2011Q4

REPORT INFORMATION
  Report Type: 
  Country: None (occurrence: None)
  Receive Date: 20111018
  Receipt Date: 20110408
  Transmission Date: 20120403
  Serious: No
  Sender: FDA-Public Use
  Company Number: US-ASTRAZENECA-2010SE22048

PATIENT
  Age: 46 Year
  Sex: Female

DRUGS (1)
  1. SYMBICORT [Suspect]
     Indication: ASTHMA
     Dosage: 640 MCG TWO TIMES A DAY
     Route: 055
     Dates: start: 20100101

REACTIONS (7)
  - MUSCLE SPASMS [None]
  - FEELING ABNORMAL [None]
  - ADVERSE DRUG REACTION [None]
  - INAPPROPRIATE SCHEDULE OF DRUG ADMINISTRATION [None]
  - PAIN IN JAW [None]
  - MALAISE [None]
  - HYPERTENSION [None]
